FAERS Safety Report 6877859-1 (Version None)
Quarter: 2010Q3

REPORT INFORMATION
  Report Type: 
  Country: None (occurrence: None)
  Receive Date: 20100727
  Receipt Date: 20070608
  Transmission Date: 20110219
  Serious: Yes (Hospitalization, Other)
  Sender: FDA-Public Use
  Company Number: US-PFIZER INC-2007030883

PATIENT
  Sex: Female
  Weight: 88 kg

DRUGS (3)
  1. CELEBREX [Suspect]
     Indication: BACK PAIN
     Dates: start: 20050401, end: 20070301
  2. CELEBREX [Suspect]
     Indication: ARTHRALGIA
  3. ACE INHIBITOR NOS [Concomitant]

REACTIONS (1)
  - NEPHROPATHY TOXIC [None]
